FAERS Safety Report 4589367-1 (Version None)
Quarter: 2005Q1

REPORT INFORMATION
  Report Type: 
  Country: None (occurrence: None)
  Receive Date: 20050216
  Receipt Date: 20050201
  Transmission Date: 20050727
  Serious: Yes (Death, Hospitalization)
  Sender: FDA-Public Use
  Company Number: A03200401163

PATIENT
  Age: 64 Year
  Sex: Female

DRUGS (5)
  1. PLAVIX [Suspect]
     Dosage: ORAL
     Route: 048
  2. GLYBURIDE [Concomitant]
  3. PIOGLITAZONE HYDROCHLORIDE [Concomitant]
  4. METFORMIN HCL [Concomitant]
  5. ACETAMINOPHEN [Concomitant]

REACTIONS (20)
  - ANAEMIA [None]
  - ANXIETY [None]
  - COMA [None]
  - CONFUSIONAL STATE [None]
  - DIABETES MELLITUS [None]
  - DYSPLASIA [None]
  - HEPATIC CIRRHOSIS [None]
  - MENTAL DISORDER [None]
  - MUSCLE SPASMS [None]
  - OVERDOSE [None]
  - PANCREATITIS [None]
  - PEPTIC ULCER [None]
  - RASH GENERALISED [None]
  - RESTLESSNESS [None]
  - THROMBOCYTOPENIC PURPURA [None]
  - VAGINAL HAEMORRHAGE [None]
  - VERTIGO [None]
  - VICTIM OF HOMICIDE [None]
  - VIRAL INFECTION [None]
  - WEIGHT INCREASED [None]
